FAERS Safety Report 12700056 (Version 1)
Quarter: 2016Q3

REPORT INFORMATION
  Report Type: Spontaneous
  Country: US (occurrence: US)
  Receive Date: 20160830
  Receipt Date: 20160830
  Transmission Date: 20161109
  Serious: No
  Sender: FDA-Public Use
  Company Number: US-PERRIGO-16US017968

PATIENT
  Age: 81 Year
  Sex: Female
  Weight: 95.24 kg

DRUGS (1)
  1. CLOBETASOL PROPIONATE. [Suspect]
     Active Substance: CLOBETASOL PROPIONATE
     Indication: PSORIASIS
     Dosage: 1 THIN LAYER, QD AT BEDTIME
     Route: 061
     Dates: start: 201603, end: 20160711

REACTIONS (3)
  - Seborrhoea [Unknown]
  - Drug effect incomplete [Unknown]
  - Inappropriate schedule of drug administration [Recovered/Resolved]

NARRATIVE: CASE EVENT DATE: 201603
